FAERS Safety Report 9249249 (Version 1)
Quarter: 2013Q2

REPORT INFORMATION
  Report Type: Spontaneous
  Country: NL (occurrence: NL)
  Receive Date: 20130423
  Receipt Date: 20130423
  Transmission Date: 20140414
  Serious: Yes (Other)
  Sender: FDA-Public Use
  Company Number: NL-TEVA-397954ISR

PATIENT
  Age: 61 Year
  Sex: Female
  Weight: 68 kg

DRUGS (4)
  1. METFORMINE TABLET 500MG [Suspect]
     Indication: TYPE 2 DIABETES MELLITUS
     Dosage: 1000 MILLIGRAM DAILY; TWICE DAILY ONE PIECE, EXTRA INFO: 2X 500 MG
     Route: 048
     Dates: start: 20060301, end: 20060308
  2. HYDROCHLOORTHIAZIDE TABLET 12,5MG [Concomitant]
     Dosage: 12.5 MILLIGRAM DAILY; ONCE DAILY ONE PIECE, EXTRA INFO: 12.5 MG
     Route: 048
     Dates: start: 1996
  3. METOPROLOL TABLET   50MG [Concomitant]
     Dosage: 50 MILLIGRAM DAILY; ONCE DAILY ONE PIECE
     Route: 048
     Dates: start: 1996
  4. SYMBICORT TURBUHALER INHALPDR 100/6MCG/DO 120DO [Concomitant]
     Dosage: 2 DOSAGE FORMS DAILY; 2 TIMES A DAY 1 PIECE (S)
     Route: 055
     Dates: start: 1990

REACTIONS (1)
  - Angioedema [Recovered/Resolved]
